FAERS Safety Report 7136816-0 (Version None)
Quarter: 2010Q4

REPORT INFORMATION
  Report Type: 
  Country: None (occurrence: None)
  Receive Date: 20101206
  Receipt Date: 20080404
  Transmission Date: 20110411
  Serious: Yes (Death)
  Sender: FDA-Public Use
  Company Number: US-ACTELION-A-NJ2008-19863

PATIENT

DRUGS (3)
  1. TRACLEER [Suspect]
     Indication: PULMONARY HYPERTENSION
     Route: 048
     Dates: start: 20070322
  2. VENTAVIS [Suspect]
     Indication: PULMONARY HYPERTENSION
     Route: 055
     Dates: start: 20061019
  3. VIAGRA [Concomitant]

REACTIONS (2)
  - DEATH [None]
  - DYSPNOEA [None]
